FAERS Safety Report 13271167 (Version 1)
Quarter: 2020Q3

REPORT INFORMATION
  Report Type: Spontaneous
  Country: SG (occurrence: SG)
  Receive Date: 20170226
  Receipt Date: 20170226
  Transmission Date: 20201105
  Serious: Yes (Other)
  Sender: FDA-Public Use
  Company Number: PHHY2017SG029438

PATIENT
  Age: 34 Year
  Sex: Female

DRUGS (5)
  1. ALECTINIB. [Suspect]
     Active Substance: ALECTINIB
     Indication: PRODUCT USED FOR UNKNOWN INDICATION
     Dosage: UNK
     Route: 065
     Dates: start: 20160331
  2. ZYKADIA [Suspect]
     Active Substance: CERITINIB
     Indication: PRODUCT USED FOR UNKNOWN INDICATION
     Dosage: UNK
     Route: 065
     Dates: start: 20151026, end: 201511
  3. ZYKADIA [Suspect]
     Active Substance: CERITINIB
     Dosage: LOW DOSE
     Route: 065
     Dates: start: 20160321, end: 20160331
  4. CRIZOTINIB [Suspect]
     Active Substance: CRIZOTINIB
     Dosage: UNK
     Route: 065
     Dates: start: 20160908, end: 20161103
  5. CRIZOTINIB [Suspect]
     Active Substance: CRIZOTINIB
     Indication: PRODUCT USED FOR UNKNOWN INDICATION
     Dosage: UNK
     Route: 065
     Dates: start: 20151208

REACTIONS (10)
  - Hepatic lesion [Unknown]
  - Mouth ulceration [Unknown]
  - Rash [Unknown]
  - Lymphadenopathy [Unknown]
  - Hepatic mass [Unknown]
  - Chest wall mass [Unknown]
  - Metastases to central nervous system [Unknown]
  - Central nervous system lesion [Unknown]
  - Asthenia [Unknown]
  - Fatigue [Unknown]
